FAERS Safety Report 6211157-4 (Version None)
Quarter: 2009Q2

REPORT INFORMATION
  Report Type: 
  Country: None (occurrence: None)
  Receive Date: 20090602
  Receipt Date: 20090526
  Transmission Date: 20091009
  Serious: Yes (Death)
  Sender: FDA-Public Use
  Company Number: ID-ROCHE-634829

PATIENT
  Age: 33 Year
  Sex: Female

DRUGS (3)
  1. OSELTAMIVIR [Suspect]
     Indication: AVIAN INFLUENZA
     Route: 065
     Dates: start: 20060817, end: 20060818
  2. CEFOTAXIM [Concomitant]
     Dosage: QD
     Dates: start: 20060817, end: 20060817
  3. DEXAMETHASONE 4MG TAB [Concomitant]
     Dosage: 1MG/KG QD
     Dates: start: 20060817, end: 20060817

REACTIONS (1)
  - PNEUMONIA [None]
